FAERS Safety Report 7246466-3 (Version None)
Quarter: 2011Q1

REPORT INFORMATION
  Report Type: 
  Country: None (occurrence: None)
  Receive Date: 20110126
  Receipt Date: 20110114
  Transmission Date: 20110831
  Serious: Yes (Other)
  Sender: FDA-Public Use
  Company Number: CH-GENENTECH-312633

PATIENT
  Age: 80 Year
  Sex: Female

DRUGS (2)
  1. LUCENTIS [Suspect]
     Indication: DIABETIC RETINOPATHY
     Dosage: 0.05 ML, UNK
     Route: 031
     Dates: start: 20090909
  2. LUCENTIS [Suspect]
     Indication: DIABETIC RETINAL OEDEMA

REACTIONS (2)
  - RETINAL VEIN THROMBOSIS [None]
  - GLAUCOMA [None]
